FAERS Safety Report 17552779 (Version 4)
Quarter: 2025Q2

REPORT INFORMATION
  Report Type: Spontaneous
  Country: PL (occurrence: PL)
  Receive Date: 20200318
  Receipt Date: 20250616
  Transmission Date: 20250717
  Serious: Yes (Life-Threatening, Hospitalization, Other)
  Sender: AUROBINDO
  Company Number: PL-KRKA-PL2020K02896LIT

PATIENT
  Age: 52 Year
  Sex: Female

DRUGS (6)
  1. METOPROLOL [Interacting]
     Active Substance: METOPROLOL
     Indication: Sinus tachycardia
     Dosage: 100 MILLIGRAM, ONCE A DAY
     Route: 065
  2. METOCLOPRAMIDE [Suspect]
     Active Substance: METOCLOPRAMIDE
     Indication: Gastrooesophageal reflux disease
     Dosage: 30 MILLIGRAM, ONCE A DAY
     Route: 048
  3. LANSOPRAZOLE [Interacting]
     Active Substance: LANSOPRAZOLE
     Indication: Gastrooesophageal reflux disease
     Dosage: 15 MILLIGRAM, ONCE A DAY
     Route: 048
  4. DULOXETINE [Interacting]
     Active Substance: DULOXETINE
     Indication: Generalised anxiety disorder
     Dosage: 30 MILLIGRAM, ONCE A DAY
     Route: 065
  5. DULOXETINE [Interacting]
     Active Substance: DULOXETINE
     Indication: Apathy
  6. DULOXETINE [Interacting]
     Active Substance: DULOXETINE
     Indication: Decreased immune responsiveness

REACTIONS (9)
  - Syncope [Unknown]
  - Bradycardia [Unknown]
  - Loss of consciousness [Unknown]
  - Drug interaction [Unknown]
  - Presyncope [Unknown]
  - Dyspepsia [Unknown]
  - Abdominal pain upper [Unknown]
  - Reflux gastritis [Unknown]
  - Off label use [Unknown]
